FAERS Safety Report 4347052-5 (Version None)
Quarter: 2004Q2

REPORT INFORMATION
  Report Type: 
  Country: None (occurrence: None)
  Receive Date: 20040426
  Receipt Date: 20040225
  Transmission Date: 20050107
  Serious: Yes (Hospitalization)
  Sender: FDA-Public Use
  Company Number: US-GLAXOSMITHKLINE-A0500603A

PATIENT
  Age: 21 Year
  Sex: Male

DRUGS (3)
  1. PAXIL [Suspect]
     Indication: ANXIETY
     Route: 048
     Dates: start: 20030601, end: 20030601
  2. CLARITIN [Concomitant]
  3. STEROID NASAL SPRAY [Concomitant]
     Indication: SEASONAL ALLERGY

REACTIONS (9)
  - DELUSION [None]
  - DRUG WITHDRAWAL SYNDROME [None]
  - HALLUCINATION [None]
  - HOMICIDAL IDEATION [None]
  - IDEAS OF REFERENCE [None]
  - PSYCHOTIC DISORDER [None]
  - SCHIZOAFFECTIVE DISORDER [None]
  - SUICIDAL IDEATION [None]
  - THOUGHT BROADCASTING [None]
